FAERS Safety Report 7891731 (Version 4)
Quarter: 2012Q4

REPORT INFORMATION
  Report Type: 
  Country: DK (occurrence: DK)
  Receive Date: 20110408
  Receipt Date: 20121106
  Transmission Date: 20130627
  Serious: Yes (Death, Hospitalization)
  Sender: FDA-Public Use
  Company Number: DK-PFIZER INC-2011052542

PATIENT
  Age: 62 Year
  Sex: Male

DRUGS (12)
  1. CELECOXIB [Suspect]
     Indication: OSTEOARTHRITIS
     Dosage: 200 mg daily, as needed
     Dates: start: 20100623
  2. AMLODIPINE [Concomitant]
     Dosage: 10 mg, daily
     Dates: start: 20101209
  3. FURIX [Concomitant]
     Dosage: 80 mg, 2x/day
     Dates: start: 20110105
  4. HJERTEMAGNYL [Concomitant]
     Dosage: 75 mg, daily
     Dates: start: 20101228
  5. NOVOMIX [Concomitant]
     Dosage: 30+18 IU
     Dates: start: 20110111
  6. SELO-ZOK [Concomitant]
     Dosage: 100 mg, daily
     Dates: start: 20101216
  7. SERETIDE [Concomitant]
     Dosage: 50+500ug
     Dates: start: 20101227
  8. SPIRIVA [Concomitant]
     Dosage: 18 ug, daily
     Dates: start: 20101227
  9. VENLAFAXINE [Concomitant]
     Dosage: 75 mg, daily
     Dates: start: 20101201
  10. ZYPREXA [Concomitant]
     Dosage: 15 mg, daily
     Dates: start: 20101215
  11. VENTOLINE [Concomitant]
     Dosage: UNK
     Dates: start: 20110105
  12. MOXALOLE [Concomitant]
     Dosage: UNK
     Dates: start: 20101202

REACTIONS (5)
  - Cardiac arrest [Fatal]
  - Chronic obstructive pulmonary disease [Recovering/Resolving]
  - Pneumonia [Recovering/Resolving]
  - Respiratory failure [Unknown]
  - Diabetes mellitus [Unknown]
